FAERS Safety Report 7797720-8 (Version None)
Quarter: 2011Q4

REPORT INFORMATION
  Report Type: 
  Country: None (occurrence: None)
  Receive Date: 20111005
  Receipt Date: 20110929
  Transmission Date: 20120403
  Serious: Yes (Hospitalization)
  Sender: FDA-Public Use
  Company Number: PHHY2010MX80282

PATIENT
  Age: 41 Year
  Sex: Female

DRUGS (2)
  1. ZOLEDRONOC ACID [Suspect]
     Indication: OSTEOPOROSIS
     Dosage: 5 MG, UNK
     Dates: start: 20100301
  2. STEROIDS NOS [Suspect]
     Dosage: UNK UKN, UNK

REACTIONS (4)
  - CHEST PAIN [None]
  - PYREXIA [None]
  - BACK PAIN [None]
  - OSTEOPENIA [None]
